FAERS Safety Report 8125950-4 (Version None)
Quarter: 2012Q1

REPORT INFORMATION
  Report Type: 
  Country: None (occurrence: None)
  Receive Date: 20120209
  Receipt Date: 20120202
  Transmission Date: 20120608
  Serious: Yes (Death, Hospitalization)
  Sender: FDA-Public Use
  Company Number: US-ABBOTT-12P-163-0899360-00

PATIENT
  Sex: Male
  Weight: 59.02 kg

DRUGS (3)
  1. HUMIRA [Suspect]
     Indication: PSORIASIS
     Dates: start: 20110601, end: 20111111
  2. UNKNOWN LIVER MEDICATION [Concomitant]
     Indication: HEPATIC CIRRHOSIS
     Dates: end: 20111111
  3. UNKNOWN MEDICATION [Concomitant]
     Indication: HYPERTENSION
     Dates: end: 20111111

REACTIONS (3)
  - HEPATIC CIRRHOSIS [None]
  - ASCITES [None]
  - HEPATORENAL SYNDROME [None]
